FAERS Safety Report 8407075-3 (Version None)
Quarter: 2012Q2

REPORT INFORMATION
  Report Type: 
  Country: None (occurrence: None)
  Receive Date: 20120604
  Receipt Date: 20120530
  Transmission Date: 20120825
  Serious: Yes (Hospitalization)
  Sender: FDA-Public Use
  Company Number: US-AMGEN-USASP2012033746

PATIENT
  Sex: Female

DRUGS (1)
  1. ENBREL [Suspect]
     Indication: RHEUMATOID ARTHRITIS
     Dosage: 25 MG, 2 TIMES/WK
     Dates: start: 20010523

REACTIONS (6)
  - INJECTION SITE PAIN [None]
  - RHEUMATOID ARTHRITIS [None]
  - FOOT OPERATION [None]
  - KNEE OPERATION [None]
  - SURGERY [None]
  - SPINAL FRACTURE [None]
